FAERS Safety Report 7723643-6 (Version None)
Quarter: 2011Q3

REPORT INFORMATION
  Report Type: 
  Country: None (occurrence: None)
  Receive Date: 20110901
  Receipt Date: 20110824
  Transmission Date: 20111222
  Serious: Yes (Hospitalization, Disabling, Other)
  Sender: FDA-Public Use
  Company Number: DE-AMGEN-DEUSP2011043118

PATIENT
  Age: 67 Year
  Sex: Female
  Weight: 60 kg

DRUGS (1)
  1. PROLIA [Suspect]
     Indication: PRODUCT USED FOR UNKNOWN INDICATION
     Dosage: 60 MG, UNK
     Route: 058
     Dates: start: 20110713

REACTIONS (14)
  - GAMMA-GLUTAMYLTRANSFERASE INCREASED [None]
  - ADIPONECTIN INCREASED [None]
  - SKIN BURNING SENSATION [None]
  - PRURITUS [None]
  - PYREXIA [None]
  - ERYTHEMA [None]
  - ALANINE AMINOTRANSFERASE INCREASED [None]
  - BLISTER [None]
  - GASTROINTESTINAL DISORDER [None]
  - CHILLS [None]
  - C-REACTIVE PROTEIN INCREASED [None]
  - IMPLANT SITE INFLAMMATION [None]
  - HEADACHE [None]
  - DYSURIA [None]
